FAERS Safety Report 9534289 (Version 2)
Quarter: 2013Q3

REPORT INFORMATION
  Report Type: Report from Study
  Country: NZ (occurrence: NZ)
  Receive Date: 20130918
  Receipt Date: 20130920
  Transmission Date: 20140515
  Serious: Yes (Hospitalization)
  Sender: FDA-Public Use
  Company Number: NZ-GLAXOSMITHKLINE-B0910862C

PATIENT
  Age: 41 Year
  Sex: Female

DRUGS (7)
  1. DABRAFENIB [Suspect]
     Indication: METASTATIC MALIGNANT MELANOMA
     Dosage: 150MG TWICE PER DAY
     Route: 048
     Dates: start: 20130301, end: 20130520
  2. ENOXAPARIN [Concomitant]
     Indication: DEEP VEIN THROMBOSIS
     Dosage: 100MG PER DAY
     Route: 058
     Dates: start: 20130518
  3. AUGMENTIN [Concomitant]
     Indication: INFECTION
     Dosage: 500MG TWICE PER DAY
     Route: 048
     Dates: start: 20130518, end: 20130524
  4. PARACETAMOL [Concomitant]
     Indication: PAIN
     Dosage: 1G AS REQUIRED
     Route: 048
  5. DEPO PROVERA [Concomitant]
     Indication: CONTRACEPTION
     Route: 030
  6. SEVREDOL [Concomitant]
     Indication: PAIN
     Route: 048
     Dates: start: 20130520
  7. DOMPERIDONE [Concomitant]
     Indication: NAUSEA
     Dosage: 10MG THREE TIMES PER DAY
     Route: 048

REACTIONS (2)
  - Deep vein thrombosis [Recovering/Resolving]
  - Pelvic venous thrombosis [Recovering/Resolving]
